FAERS Safety Report 18434876 (Version 1)
Quarter: 2020Q4

REPORT INFORMATION
  Report Type: Spontaneous
  Country: FR (occurrence: FR)
  Receive Date: 20201028
  Receipt Date: 20201028
  Transmission Date: 20210114
  Serious: Yes (Hospitalization, Other)
  Sender: FDA-Public Use
  Company Number: FR-ASTRAZENECA-2020SF39211

PATIENT
  Age: 897 Month
  Sex: Female

DRUGS (2)
  1. LYNPARZA [Suspect]
     Active Substance: OLAPARIB
     Dosage: FORMULATION: CAPSULE
     Route: 048
     Dates: start: 201601, end: 201602
  2. LYNPARZA [Suspect]
     Active Substance: OLAPARIB
     Dosage: FORMULATION: CAPSULE
     Route: 048
     Dates: start: 201602

REACTIONS (5)
  - Drug tolerance decreased [Unknown]
  - Cerebrovascular accident [Unknown]
  - Pneumonia [Recovered/Resolved]
  - Nausea [Recovering/Resolving]
  - Anaemia [Not Recovered/Not Resolved]

NARRATIVE: CASE EVENT DATE: 201602
